FAERS Safety Report 15311390 (Version 1)
Quarter: 2018Q3

REPORT INFORMATION
  Report Type: Spontaneous
  Country: US (occurrence: US)
  Receive Date: 20180823
  Receipt Date: 20180823
  Transmission Date: 20181010
  Serious: No
  Sender: FDA-Public Use
  Company Number: US-AMGEN-USASP2018115574

PATIENT
  Age: 64 Year
  Sex: Female

DRUGS (1)
  1. ENBREL [Suspect]
     Active Substance: ETANERCEPT
     Indication: RHEUMATOID ARTHRITIS
     Dosage: UNK UNK, QWK
     Route: 065
     Dates: start: 20180805

REACTIONS (5)
  - Injection site erythema [Unknown]
  - Injection site pruritus [Unknown]
  - Injection site swelling [Unknown]
  - Injection site mass [Unknown]
  - Injection site warmth [Unknown]

NARRATIVE: CASE EVENT DATE: 201808
